FAERS Safety Report 5639045-2 (Version None)
Quarter: 2008Q1

REPORT INFORMATION
  Report Type: 
  Country: None (occurrence: None)
  Receive Date: 20080226
  Receipt Date: 20080131
  Transmission Date: 20080703
  Serious: Yes (Hospitalization)
  Sender: FDA-Public Use
  Company Number: CA-JNJFOC-20080200932

PATIENT
  Sex: Female
  Weight: 63.5 kg

DRUGS (3)
  1. ORTHO TRI-CYCLEN [Suspect]
     Indication: CONTRACEPTION
     Route: 048
  2. PAXIL [Concomitant]
     Indication: DEPRESSION
     Route: 048
  3. LUVOX [Concomitant]
     Indication: DEPRESSION
     Route: 048

REACTIONS (4)
  - ANXIETY [None]
  - MENSTRUATION DELAYED [None]
  - OBSESSIVE-COMPULSIVE DISORDER [None]
  - PHOBIA [None]
